FAERS Safety Report 6525246-8 (Version None)
Quarter: 2009Q4

REPORT INFORMATION
  Report Type: 
  Country: None (occurrence: None)
  Receive Date: 20091228
  Receipt Date: 20091019
  Transmission Date: 20100525
  Serious: Yes (Hospitalization)
  Sender: FDA-Public Use
  Company Number: PTR-0066-2009

PATIENT
  Age: 12 Year
  Sex: Male

DRUGS (3)
  1. AMPHOTERICIN B [Suspect]
     Indication: PNEUMONIA MYCOPLASMAL
     Dosage: 9 MG/KG (3 MG/KG,1 IN 8 HR); INTRAVENOUS
     Route: 042
     Dates: start: 20090918, end: 20090918
  2. PURINETHOL (MERCAPTHOPURINE) (TABLETS) [Concomitant]
  3. SINERSUL (COTRIMOXAZOL) (TABLETS) [Concomitant]

REACTIONS (4)
  - CHILLS [None]
  - HYPERPYREXIA [None]
  - SOMNOLENCE [None]
  - TACHYCARDIA [None]
